FAERS Safety Report 9373243 (Version 1)
Quarter: 2013Q2

REPORT INFORMATION
  Report Type: Report from Study
  Country: GB (occurrence: GB)
  Receive Date: 20130627
  Receipt Date: 20130627
  Transmission Date: 20140414
  Serious: Yes (Hospitalization)
  Sender: FDA-Public Use
  Company Number: GB-JNJFOC-20130614171

PATIENT
  Age: 51 Year
  Sex: Female
  Weight: 84.9 kg

DRUGS (3)
  1. USTEKINUMAB [Suspect]
     Indication: PSORIASIS
     Route: 058
     Dates: start: 20130130
  2. USTEKINUMAB [Suspect]
     Indication: PSORIASIS
     Route: 058
     Dates: start: 20120301, end: 20120925
  3. OMEPRAZOLE [Concomitant]
     Dates: start: 20090101

REACTIONS (1)
  - Pelvic sepsis [Recovered/Resolved]
